FAERS Safety Report 16051915 (Version 3)
Quarter: 2019Q1

REPORT INFORMATION
  Report Type: Spontaneous
  Country: US (occurrence: US)
  Receive Date: 20190308
  Receipt Date: 20190321
  Transmission Date: 20190418
  Serious: Yes (Death, Hospitalization, Other)
  Sender: FDA-Public Use
  Company Number: US-PFIZER INC-2019100124

PATIENT
  Age: 66 Year
  Sex: Male

DRUGS (14)
  1. IDARUBICIN HCL [Suspect]
     Active Substance: IDARUBICIN HYDROCHLORIDE
     Indication: ACUTE MYELOID LEUKAEMIA
     Dosage: UNK, CYCLIC (INDUCTION)
     Dates: start: 200109
  2. PREDNISONE. [Concomitant]
     Active Substance: PREDNISONE
     Dosage: UNK (DOSAGE WAS TAPERED)
  3. CYCLOSPORINE. [Concomitant]
     Active Substance: CYCLOSPORINE
     Indication: MESENTERIC PANNICULITIS
     Dosage: 300 MG, (2 DOSES, 150 MG EACH)
     Route: 042
  4. MEROPENEM. [Concomitant]
     Active Substance: MEROPENEM
     Indication: RESPIRATORY DEPRESSION
     Dosage: UNK
     Dates: start: 2006
  5. DOXYCYCLINE. [Concomitant]
     Active Substance: DOXYCYCLINE
     Indication: RESPIRATORY DEPRESSION
     Dosage: UNK
     Dates: start: 2006
  6. PIPERACILLIN AND TAZOBACTAM [Concomitant]
     Active Substance: PIPERACILLIN SODIUM\TAZOBACTAM SODIUM
     Indication: PLEURAL EFFUSION
  7. CYTARABINE. [Suspect]
     Active Substance: CYTARABINE
     Indication: ACUTE MYELOID LEUKAEMIA
     Dosage: UNK, CYCLIC (INDUCTION)
     Dates: start: 200109
  8. CYTARABINE. [Suspect]
     Active Substance: CYTARABINE
     Dosage: UNK, CYCLIC (SIX COURSES OF CONSOLIDATION THERAPY)
     Dates: start: 200109
  9. VORICONAZOLE. [Concomitant]
     Active Substance: VORICONAZOLE
     Indication: RESPIRATORY DEPRESSION
     Dosage: UNK
     Dates: start: 2006
  10. GEMTUZUMAB OZOGAMICIN [Suspect]
     Active Substance: GEMTUZUMAB OZOGAMICIN
     Indication: ACUTE MYELOID LEUKAEMIA
     Dosage: UNK, CYCLIC (SIX COURSES OF CONSOLIDATION THERAPY)
     Dates: start: 2001
  11. PREDNISONE. [Concomitant]
     Active Substance: PREDNISONE
     Indication: MESENTERIC PANNICULITIS
     Dosage: 70 MG, DAILY
  12. GANCICLOVIR. [Concomitant]
     Active Substance: GANCICLOVIR
     Indication: RESPIRATORY DEPRESSION
     Dosage: UNK
     Dates: start: 2006
  13. LINEZOLID. [Concomitant]
     Active Substance: LINEZOLID
     Indication: RESPIRATORY DEPRESSION
     Dosage: UNK
     Dates: start: 2006
  14. PIPERACILLIN AND TAZOBACTAM [Concomitant]
     Active Substance: PIPERACILLIN SODIUM\TAZOBACTAM SODIUM
     Indication: LUNG INFILTRATION
     Dosage: UNK
     Dates: start: 2006

REACTIONS (3)
  - Second primary malignancy [Unknown]
  - Anaplastic lymphoma kinase gene mutation [Unknown]
  - Anaplastic large-cell lymphoma [Unknown]
